FAERS Safety Report 20963162 (Version 1)
Quarter: 2022Q2

REPORT INFORMATION
  Report Type: Report from Study
  Country: AU (occurrence: AU)
  Receive Date: 20220615
  Receipt Date: 20220615
  Transmission Date: 20220721
  Serious: Yes (Hospitalization, Other)
  Sender: FDA-Public Use
  Company Number: AU-BRISTOL-MYERS SQUIBB COMPANY-2022-015856

PATIENT
  Age: 77 Year
  Sex: Male
  Weight: 65.4 kg

DRUGS (34)
  1. AZACITIDINE [Suspect]
     Active Substance: AZACITIDINE
     Indication: Myelodysplastic syndrome
     Dosage: 7 DAYS WITHIN THE FIRST 9 CALENDAR
     Route: 058
     Dates: start: 20210719
  2. VENETOCLAX [Suspect]
     Active Substance: VENETOCLAX
     Indication: Myelodysplastic syndrome
     Route: 065
  3. ALLOPURINOL [Concomitant]
     Active Substance: ALLOPURINOL
     Indication: Prophylaxis
     Route: 048
  4. ALLOPURINOL [Concomitant]
     Active Substance: ALLOPURINOL
     Route: 048
     Dates: start: 20210715
  5. PERINDOPRIL [Concomitant]
     Active Substance: PERINDOPRIL
     Indication: Cardiac failure
     Dosage: 1 IN 1 D
     Route: 048
  6. PERINDOPRIL [Concomitant]
     Active Substance: PERINDOPRIL
     Route: 048
     Dates: start: 20211029
  7. POTASSIUM CHLORIDE [Concomitant]
     Active Substance: POTASSIUM CHLORIDE
     Indication: Hypokalaemia
     Dosage: 1 IN 1 D
     Route: 048
  8. POTASSIUM CHLORIDE [Concomitant]
     Active Substance: POTASSIUM CHLORIDE
     Route: 048
     Dates: start: 20211119
  9. ENOXAPARIN [Concomitant]
     Active Substance: ENOXAPARIN
     Indication: Thrombosis prophylaxis
     Route: 058
     Dates: start: 20220304
  10. ENOXAPARIN [Concomitant]
     Active Substance: ENOXAPARIN
  11. ONDANSETRON [Concomitant]
     Active Substance: ONDANSETRON
     Indication: Prophylaxis of nausea and vomiting
     Route: 048
     Dates: start: 20210719
  12. ONDANSETRON [Concomitant]
     Active Substance: ONDANSETRON
     Route: 042
     Dates: start: 20220304
  13. MELATONIN [Concomitant]
     Active Substance: MELATONIN
     Indication: Insomnia
     Route: 048
     Dates: start: 20210427
  14. MELATONIN [Concomitant]
     Active Substance: MELATONIN
     Route: 048
     Dates: start: 2021, end: 20210403
  15. POSACONAZOLE [Concomitant]
     Active Substance: POSACONAZOLE
     Indication: Antifungal prophylaxis
     Route: 048
     Dates: start: 20210719, end: 20220401
  16. AMOXICILLIN\CLAVULANATE POTASSIUM [Concomitant]
     Active Substance: AMOXICILLIN\CLAVULANATE POTASSIUM
     Indication: Prophylaxis
     Route: 048
     Dates: start: 20210719, end: 20220324
  17. METOCLOPRAMIDE [Concomitant]
     Active Substance: METOCLOPRAMIDE
     Indication: Prophylaxis of nausea and vomiting
     Route: 048
     Dates: start: 20210719
  18. ASPIRIN [Concomitant]
     Active Substance: ASPIRIN
     Indication: Myocardial ischaemia
     Route: 048
     Dates: start: 20210918
  19. ROSUVASTATIN [Concomitant]
     Active Substance: ROSUVASTATIN
     Indication: Myocardial ischaemia
     Route: 048
     Dates: start: 20210918
  20. ROSUVASTATIN [Concomitant]
     Active Substance: ROSUVASTATIN
     Route: 048
     Dates: start: 20210311, end: 20210403
  21. TEMAZEPAM [Concomitant]
     Active Substance: TEMAZEPAM
     Indication: Prophylaxis
     Route: 048
     Dates: start: 20210918
  22. FUROSEMIDE [Concomitant]
     Active Substance: FUROSEMIDE
     Indication: Cardiac failure
     Route: 048
     Dates: start: 20210927, end: 20220303
  23. FUROSEMIDE [Concomitant]
     Active Substance: FUROSEMIDE
     Route: 042
     Dates: start: 20220304
  24. FENTANYL [Concomitant]
     Active Substance: FENTANYL
     Indication: Sedative therapy
     Dosage: STAT
     Route: 042
     Dates: start: 20210922
  25. COLOXYL WITH SENNA [DOCUSATE SODIUM;SENNOSIDE B] [Concomitant]
     Indication: Constipation
     Dosage: 2 TABLETS
     Route: 048
     Dates: start: 20211018
  26. BISOPROLOL [Concomitant]
     Active Substance: BISOPROLOL
     Indication: Cardiac failure
     Route: 048
     Dates: start: 20211029
  27. NITROGLYCERIN [Concomitant]
     Active Substance: NITROGLYCERIN
     Indication: Angina pectoris
     Route: 060
     Dates: start: 20211004
  28. ACETAMINOPHEN [Concomitant]
     Active Substance: ACETAMINOPHEN
     Indication: Chest pain
     Route: 048
     Dates: start: 20220303
  29. ACETAMINOPHEN [Concomitant]
     Active Substance: ACETAMINOPHEN
     Indication: Pain
  30. ACETAMINOPHEN [Concomitant]
     Active Substance: ACETAMINOPHEN
     Indication: Pyrexia
  31. PIPERACILLIN SODIUM\TAZOBACTAM SODIUM [Concomitant]
     Active Substance: PIPERACILLIN SODIUM\TAZOBACTAM SODIUM
     Indication: Pneumonia
     Route: 042
     Dates: start: 20220303
  32. OXYCODONE [Concomitant]
     Active Substance: OXYCODONE
     Indication: Chest pain
     Dosage: 2.5 TO 5 MG
     Route: 048
     Dates: start: 20220304
  33. VALACYCLOVIR HYDROCHLORIDE [Concomitant]
     Active Substance: VALACYCLOVIR HYDROCHLORIDE
     Indication: Antiviral prophylaxis
     Dates: start: 20210719, end: 20220404
  34. VITAMINS [Concomitant]
     Active Substance: VITAMINS
     Indication: General physical health deterioration
     Route: 065
     Dates: start: 20210312

REACTIONS (1)
  - Respiratory tract infection fungal [Not Recovered/Not Resolved]

NARRATIVE: CASE EVENT DATE: 20220323
